FAERS Safety Report 21750794 (Version 4)
Quarter: 2024Q3

REPORT INFORMATION
  Report Type: Report from Study
  Country: US (occurrence: US)
  Receive Date: 20221219
  Receipt Date: 20240830
  Transmission Date: 20241017
  Serious: Yes (Other)
  Sender: ABBVIE
  Company Number: US-ABBVIE-4241644

PATIENT
  Age: 77 Year
  Sex: Female
  Weight: 76 kg

DRUGS (4)
  1. IMBRUVICA [Suspect]
     Active Substance: IBRUTINIB
     Indication: Chronic lymphocytic leukaemia
     Route: 048
     Dates: start: 201506
  2. IMBRUVICA [Suspect]
     Active Substance: IBRUTINIB
     Indication: Chronic lymphocytic leukaemia
     Route: 048
  3. IMBRUVICA [Suspect]
     Active Substance: IBRUTINIB
     Indication: Chronic lymphocytic leukaemia
     Dosage: LAST ADMIN DATE: 2015
     Route: 048
     Dates: start: 20150101
  4. COVID-19 VACCINE NOS [Suspect]
     Active Substance: COVID-19 VACCINE
     Indication: COVID-19 immunisation
     Route: 030

REACTIONS (9)
  - Foot deformity [Recovered/Resolved]
  - Muscle spasms [Unknown]
  - Chondropathy [Unknown]
  - Nausea [Unknown]
  - Paraesthesia [Unknown]
  - Vaccination site erythema [Unknown]
  - Vaccination site warmth [Unknown]
  - Vaccination site pruritus [Unknown]
  - Foot deformity [Unknown]

NARRATIVE: CASE EVENT DATE: 20220626
